FAERS Safety Report 13450281 (Version 1)
Quarter: 2017Q2

REPORT INFORMATION
  Report Type: Spontaneous
  Country: US (occurrence: US)
  Receive Date: 20170417
  Receipt Date: 20170417
  Transmission Date: 20170830
  Serious: Yes (Other)
  Sender: FDA-Public Use
  Company Number: US-ASTRAZENECA-2017SE37849

PATIENT
  Age: 67 Year
  Sex: Female
  Weight: 69.4 kg

DRUGS (9)
  1. LORAZEPAM. [Concomitant]
     Active Substance: LORAZEPAM
     Indication: ANXIETY
     Dosage: MYLAN50.0MG AS REQUIRED
  2. ARIMIDEX [Suspect]
     Active Substance: ANASTROZOLE
     Indication: HER-2 POSITIVE BREAST CANCER
     Dosage: ONCE PILL DAILY
     Route: 048
  3. SERTRALINE [Concomitant]
     Active Substance: SERTRALINE HYDROCHLORIDE
     Indication: ANXIETY
     Dosage: MYLAN
  4. XARELTO [Concomitant]
     Active Substance: RIVAROXABAN
     Indication: ANTICOAGULANT THERAPY
     Dates: start: 2008
  5. HERCEPTIN [Suspect]
     Active Substance: TRASTUZUMAB
     Indication: HER-2 POSITIVE BREAST CANCER
     Route: 065
  6. FEMARA [Suspect]
     Active Substance: LETROZOLE
     Indication: HER-2 POSITIVE BREAST CANCER
     Dosage: ONE PILL DAILY
     Route: 048
  7. AROMASIN [Suspect]
     Active Substance: EXEMESTANE
     Indication: HER-2 POSITIVE BREAST CANCER
     Route: 048
  8. ADRIAMYCIN [Suspect]
     Active Substance: DOXORUBICIN HYDROCHLORIDE
     Indication: HER-2 POSITIVE BREAST CANCER
     Route: 065
  9. AROMASIN [Suspect]
     Active Substance: EXEMESTANE
     Indication: HER-2 POSITIVE BREAST CANCER
     Dosage: PFIZER, 25 MG , ONCE DAILY
     Route: 048

REACTIONS (19)
  - Onychomadesis [Recovered/Resolved]
  - Weight decreased [Unknown]
  - Depression [Unknown]
  - Neuropathy peripheral [Not Recovered/Not Resolved]
  - Drug hypersensitivity [Recovered/Resolved]
  - Fatigue [Unknown]
  - Lethargy [Unknown]
  - Memory impairment [Not Recovered/Not Resolved]
  - Stomatitis [Recovered/Resolved]
  - Arthralgia [Unknown]
  - Hypersensitivity [Unknown]
  - Anxiety [Unknown]
  - Deep vein thrombosis [Recovered/Resolved]
  - Alopecia [Recovered/Resolved]
  - Weight increased [Not Recovered/Not Resolved]
  - Anaemia [Recovered/Resolved]
  - Abasia [Recovered/Resolved]
  - White blood cell count decreased [Unknown]
  - Headache [Not Recovered/Not Resolved]
